FAERS Safety Report 12517778 (Version 9)
Quarter: 2021Q1

REPORT INFORMATION
  Report Type: Spontaneous
  Country: US (occurrence: US)
  Receive Date: 20160630
  Receipt Date: 20210326
  Transmission Date: 20210419
  Serious: No
  Sender: FDA-Public Use
  Company Number: US-VERTEX PHARMACEUTICALS-2016-004045

PATIENT
  Age: 6 Year
  Sex: Male

DRUGS (23)
  1. KALYDECO [Suspect]
     Active Substance: IVACAFTOR
     Dosage: 75 MG, QD
     Route: 048
     Dates: start: 20160323
  2. KALYDECO [Suspect]
     Active Substance: IVACAFTOR
     Dosage: 150 UNK
     Route: 048
     Dates: start: 20200304, end: 20210317
  3. PROVENTIL HFA [Concomitant]
     Active Substance: ALBUTEROL SULFATE
  4. MUPIROCIN. [Concomitant]
     Active Substance: MUPIROCIN
     Dosage: OINTMENT
  5. PULMOZYME [Concomitant]
     Active Substance: DORNASE ALFA
  6. ZENPEP [Concomitant]
     Active Substance: PANCRELIPASE AMYLASE\PANCRELIPASE LIPASE\PANCRELIPASE PROTEASE
  7. ALBUTEROL. [Concomitant]
     Active Substance: ALBUTEROL
  8. TOBRAMYCIN. [Concomitant]
     Active Substance: TOBRAMYCIN
  9. CYPROHEPTADINE. [Concomitant]
     Active Substance: CYPROHEPTADINE
  10. FLUTICASONE. [Concomitant]
     Active Substance: FLUTICASONE
  11. KALYDECO [Suspect]
     Active Substance: IVACAFTOR
     Indication: CYSTIC FIBROSIS
     Dosage: 75 MG, BID
     Route: 048
     Dates: start: 20150824, end: 20160323
  12. OMEPRAZOLE. [Concomitant]
     Active Substance: OMEPRAZOLE
  13. POLYETHYLENE GLYCOL [Concomitant]
     Active Substance: POLYETHYLENE GLYCOLS
  14. RANITIDINE. [Concomitant]
     Active Substance: RANITIDINE
  15. BUDESONIDE. [Concomitant]
     Active Substance: BUDESONIDE
  16. VITAMIN E [Concomitant]
     Active Substance: .ALPHA.-TOCOPHEROL
  17. BETHKIS [Concomitant]
     Active Substance: TOBRAMYCIN
  18. KALYDECO [Suspect]
     Active Substance: IVACAFTOR
     Dosage: 150 MG TABLETS, BID
     Route: 048
     Dates: start: 20190711, end: 20200117
  19. FINEST [Concomitant]
     Dosage: LIQUID
  20. FLOVENT [Concomitant]
     Active Substance: FLUTICASONE PROPIONATE
  21. PROAIR HFA [Concomitant]
     Active Substance: ALBUTEROL SULFATE
  22. SMZ?TMP [Concomitant]
     Active Substance: SULFAMETHOXAZOLE\TRIMETHOPRIM
  23. SODIUM CHLORIDE. [Concomitant]
     Active Substance: SODIUM CHLORIDE

REACTIONS (5)
  - Gamma-glutamyltransferase increased [Not Recovered/Not Resolved]
  - Alanine aminotransferase increased [Not Recovered/Not Resolved]
  - Infective pulmonary exacerbation of cystic fibrosis [Unknown]
  - Treatment noncompliance [Unknown]
  - Aspartate aminotransferase increased [Not Recovered/Not Resolved]

NARRATIVE: CASE EVENT DATE: 2015
